FAERS Safety Report 22267971 (Version 1)
Quarter: 2023Q2

REPORT INFORMATION
  Report Type: Report from Study
  Country: US (occurrence: US)
  Receive Date: 20230430
  Receipt Date: 20230430
  Transmission Date: 20230722
  Serious: No
  Sender: FDA-Public Use
  Company Number: US-002147023-NVSC2023US097269

PATIENT
  Sex: Female

DRUGS (8)
  1. CLOBETASOL [Suspect]
     Active Substance: CLOBETASOL
     Indication: Psoriatic arthropathy
     Dosage: 0.05 %
     Route: 061
  2. METRONIDAZOLE [Suspect]
     Active Substance: METRONIDAZOLE
     Indication: Psoriatic arthropathy
     Dosage: 1 %, QD
     Route: 061
  3. TRIAMCINOLONE [Suspect]
     Active Substance: TRIAMCINOLONE
     Indication: Psoriasis
     Dosage: UNK UNK, OTHER (ONCE AT BEDTIME)
     Route: 061
  4. CLOBETASOL [Suspect]
     Active Substance: CLOBETASOL
     Indication: Psoriatic arthropathy
     Dosage: 0.05 %
     Route: 065
  5. LEVOTHYROXINE [Suspect]
     Active Substance: LEVOTHYROXINE
     Indication: Psoriatic arthropathy
     Dosage: 100 UG
     Route: 065
  6. LORAZEPAM [Suspect]
     Active Substance: LORAZEPAM
     Indication: Product used for unknown indication
     Dosage: UNK (0.5 OR 1.0 MG)
     Route: 048
  7. METFORMIN [Suspect]
     Active Substance: METFORMIN HYDROCHLORIDE
     Indication: Psoriatic arthropathy
     Dosage: 500 MG
     Route: 065
  8. DOXYCYCLINE [Suspect]
     Active Substance: DOXYCYCLINE
     Indication: Psoriatic arthropathy
     Dosage: 20 MG, BID
     Route: 048

REACTIONS (1)
  - Drug ineffective [Unknown]
